FAERS Safety Report 16794441 (Version 1)
Quarter: 2019Q3

REPORT INFORMATION
  Report Type: Spontaneous
  Country: AR (occurrence: AR)
  Receive Date: 20190911
  Receipt Date: 20190911
  Transmission Date: 20191005
  Serious: Yes (Life-Threatening, Hospitalization)
  Sender: FDA-Public Use
  Company Number: PHHY2019AR183653

PATIENT
  Age: 15 Year
  Sex: Male

DRUGS (1)
  1. CARBAMAZEPINE. [Suspect]
     Active Substance: CARBAMAZEPINE
     Indication: BULIMIA NERVOSA
     Dosage: 200 MG, QD
     Route: 065

REACTIONS (5)
  - Erythema [Unknown]
  - Oral disorder [Unknown]
  - Stevens-Johnson syndrome [Unknown]
  - Noninfective conjunctivitis [Recovering/Resolving]
  - Product use in unapproved indication [Unknown]
